FAERS Safety Report 7458015-5 (Version None)
Quarter: 2011Q2

REPORT INFORMATION
  Report Type: 
  Country: None (occurrence: None)
  Receive Date: 20110504
  Receipt Date: 20110502
  Transmission Date: 20111010
  Serious: Yes (Other)
  Sender: FDA-Public Use
  Company Number: BE-PFIZER INC-2011094363

PATIENT
  Age: 40 Year
  Sex: Female

DRUGS (3)
  1. CHAMPIX [Suspect]
     Indication: SMOKING CESSATION THERAPY
     Route: 048
  2. PANTOPRAZOLE SODIUM [Concomitant]
     Dosage: 40 MG, UNK
  3. ESTIVAN [Concomitant]
     Dosage: 20 MG, UNK

REACTIONS (9)
  - ACNE [None]
  - INSOMNIA [None]
  - ORAL MUCOSAL EXFOLIATION [None]
  - VIRAL INFECTION [None]
  - ARTHRALGIA [None]
  - TENDONITIS [None]
  - ABDOMINAL PAIN UPPER [None]
  - NIGHTMARE [None]
  - PRURITUS [None]
